FAERS Safety Report 11773316 (Version 3)
Quarter: 2016Q2

REPORT INFORMATION
  Report Type: Report from Study
  Country: US (occurrence: US)
  Receive Date: 20151124
  Receipt Date: 20160419
  Transmission Date: 20160815
  Serious: Yes (Death, Hospitalization, Other)
  Sender: FDA-Public Use
  Company Number: US-BRISTOL-MYERS SQUIBB COMPANY-BMS-2015-080125

PATIENT
  Age: 73 Year
  Sex: Female
  Weight: 47.21 kg

DRUGS (6)
  1. ZOFRAN [Concomitant]
     Active Substance: ONDANSETRON HYDROCHLORIDE
     Indication: PRODUCT USED FOR UNKNOWN INDICATION
     Dosage: UNK
     Route: 065
  2. IPILIMUMAB [Suspect]
     Active Substance: IPILIMUMAB
     Indication: OVARIAN EPITHELIAL CANCER
     Dosage: 1 MG/KG, Q3WK
     Route: 042
     Dates: start: 20151102
  3. MIRALAX [Concomitant]
     Active Substance: POLYETHYLENE GLYCOL 3350
     Indication: PRODUCT USED FOR UNKNOWN INDICATION
     Dosage: UNK
     Route: 065
  4. URSODIOL. [Concomitant]
     Active Substance: URSODIOL
     Indication: PRODUCT USED FOR UNKNOWN INDICATION
     Dosage: UNK
     Route: 065
  5. REGLAN [Concomitant]
     Active Substance: METOCLOPRAMIDE HYDROCHLORIDE
     Indication: PRODUCT USED FOR UNKNOWN INDICATION
     Dosage: UNK
     Route: 065
  6. NIVOLUMAB [Suspect]
     Active Substance: NIVOLUMAB
     Indication: OVARIAN EPITHELIAL CANCER
     Dosage: 3 MG/KG, Q3WK
     Route: 042
     Dates: start: 20151102

REACTIONS (5)
  - Atrial fibrillation [Unknown]
  - Nausea [Recovered/Resolved]
  - Vomiting [Unknown]
  - Small intestinal obstruction [Fatal]
  - Dysphagia [Unknown]

NARRATIVE: CASE EVENT DATE: 20151107
